FAERS Safety Report 8199636-4 (Version None)
Quarter: 2012Q1

REPORT INFORMATION
  Report Type: 
  Country: None (occurrence: None)
  Receive Date: 20120311
  Receipt Date: 20120305
  Transmission Date: 20120608
  Serious: Yes (Hospitalization)
  Sender: FDA-Public Use
  Company Number: US-VERTEX PHARMACEUTICALS INC.-AE-2012-003097

PATIENT
  Sex: Male

DRUGS (3)
  1. INCIVEK [Suspect]
     Indication: HEPATITIS C
     Dates: start: 20111201, end: 20120301
  2. PEGASYS [Concomitant]
     Indication: HEPATITIS C
     Dates: start: 20111201, end: 20120302
  3. RIBAVIRIN [Concomitant]
     Indication: HEPATITIS C
     Dates: start: 20111201, end: 20120302

REACTIONS (6)
  - BURNING SENSATION MUCOSAL [None]
  - PYREXIA [None]
  - RASH GENERALISED [None]
  - STEVENS-JOHNSON SYNDROME [None]
  - EOSINOPHILIA [None]
  - DYSPHAGIA [None]
